FAERS Safety Report 4510586-4 (Version None)
Quarter: 2004Q4

REPORT INFORMATION
  Report Type: 
  Country: None (occurrence: None)
  Receive Date: 20041119
  Receipt Date: 20041020
  Transmission Date: 20050328
  Serious: Yes (Other)
  Sender: FDA-Public Use
  Company Number: 2004-DE-05793DE

PATIENT
  Age: 29 Year
  Sex: Female

DRUGS (4)
  1. PRAMIPEXOLE (PRAMIPEXOLE DIHYDROCHLORIDE) (TA) [Suspect]
     Indication: SENSORY DISTURBANCE
     Dosage: 2100 MCG, PO
     Route: 048
     Dates: start: 20040609
  2. CELECOXIB (CELECOXIB) [Suspect]
     Indication: PAIN
     Dosage: 400 MG (200 MG), PO
     Route: 048
     Dates: start: 20040903, end: 20040930
  3. LANSOPRAZLOLE [Concomitant]
  4. CO-CODAMOL(PANADEINE CO) [Concomitant]

REACTIONS (2)
  - DRUG INTERACTION [None]
  - DYSTONIA [None]
